FAERS Safety Report 15883510 (Version 2)
Quarter: 2019Q1

REPORT INFORMATION
  Report Type: Spontaneous
  Country: IT (occurrence: IT)
  Receive Date: 20190129
  Receipt Date: 20190208
  Transmission Date: 20190417
  Serious: Yes (Hospitalization, Other)
  Sender: FDA-Public Use
  Company Number: IT-ACCORD-104188

PATIENT
  Age: 95 Year
  Sex: Female

DRUGS (2)
  1. ALLOPURINOL. [Suspect]
     Active Substance: ALLOPURINOL
     Indication: HYPERURICAEMIA
     Dates: start: 20180301, end: 20180405
  2. TICLOPIDINE [Interacting]
     Active Substance: TICLOPIDINE
     Indication: ARTERIAL DISORDER
     Dosage: 500 MG FROM 13-MAR-2018 TO 03-APR-2018,DOSE REDUCED
     Route: 048
     Dates: start: 20180403

REACTIONS (4)
  - Drug interaction [Unknown]
  - Hyperbilirubinaemia [Unknown]
  - Jaundice [Unknown]
  - Urticaria [Unknown]

NARRATIVE: CASE EVENT DATE: 20180405
